FAERS Safety Report 4884782-0 (Version None)
Quarter: 2005Q4

REPORT INFORMATION
  Report Type: 
  Country: None (occurrence: None)
  Receive Date: 20051201
  Receipt Date: 20050919
  Transmission Date: 20060501
  Serious: No
  Sender: FDA-Public Use
  Company Number: 2005PV002259

PATIENT
  Age: 65 Year
  Sex: Male
  Weight: 113.3993 kg

DRUGS (9)
  1. BYETTA [Suspect]
     Indication: DIABETES MELLITUS NON-INSULIN-DEPENDENT
     Dosage: 10 MCG; BID; SC
     Route: 058
     Dates: start: 20050719
  2. GLIPIZIDE [Concomitant]
  3. METFORMIN [Concomitant]
  4. ACTOS [Concomitant]
  5. BLOOD PRESSURE [Concomitant]
  6. MEDICATION [Concomitant]
  7. HEART MEDICATIONS [Concomitant]
  8. VYTORIN [Concomitant]
  9. INSULIN [Concomitant]

REACTIONS (3)
  - INJECTION SITE BRUISING [None]
  - INJECTION SITE PAIN [None]
  - WEIGHT DECREASED [None]
